FAERS Safety Report 21378981 (Version 1)
Quarter: 2022Q3

REPORT INFORMATION
  Report Type: Report from Study
  Country: US (occurrence: US)
  Receive Date: 20220927
  Receipt Date: 20220927
  Transmission Date: 20221026
  Serious: Yes (Other)
  Sender: FDA-Public Use
  Company Number: US-ABBVIE-4130234

PATIENT
  Sex: Male

DRUGS (1)
  1. RINVOQ [Suspect]
     Active Substance: UPADACITINIB
     Indication: Rheumatoid arthritis
     Route: 048

REACTIONS (5)
  - Lumbar vertebral fracture [Not Recovered/Not Resolved]
  - Seizure [Unknown]
  - Pain [Not Recovered/Not Resolved]
  - Balance disorder [Recovering/Resolving]
  - Fall [Not Recovered/Not Resolved]
